FAERS Safety Report 25249675 (Version 1)
Quarter: 2025Q2

REPORT INFORMATION
  Report Type: Spontaneous
  Country: JP (occurrence: JP)
  Receive Date: 20250429
  Receipt Date: 20250429
  Transmission Date: 20250717
  Serious: Yes (Hospitalization)
  Sender: MERCK SHARP & DOHME LLC
  Company Number: JP-009507513-2280927

PATIENT
  Age: 71 Year
  Sex: Female

DRUGS (3)
  1. KEYTRUDA [Suspect]
     Active Substance: PEMBROLIZUMAB
     Indication: Triple negative breast cancer
     Dosage: TOTAL COURSES: 3 COURSES
     Route: 041
     Dates: start: 20241210, end: 202501
  2. PACLITAXEL [Concomitant]
     Active Substance: PACLITAXEL
     Route: 065
     Dates: start: 20241210
  3. CARBOPLATIN [Concomitant]
     Active Substance: CARBOPLATIN
     Route: 065
     Dates: start: 20241210

REACTIONS (2)
  - Muscular weakness [Recovering/Resolving]
  - Guillain-Barre syndrome [Recovering/Resolving]

NARRATIVE: CASE EVENT DATE: 20250101
